FAERS Safety Report 21848557 (Version 2)
Quarter: 2023Q2

REPORT INFORMATION
  Report Type: Spontaneous
  Country: US (occurrence: US)
  Receive Date: 20230111
  Receipt Date: 20230405
  Transmission Date: 20230721
  Serious: No
  Sender: FDA-Public Use
  Company Number: US-CHEMOCENTRYX, INC.-2022USCCXI0625

PATIENT

DRUGS (6)
  1. TAVNEOS [Suspect]
     Active Substance: AVACOPAN
     Indication: Product used for unknown indication
     Dosage: 30 MG, 2X/DAY (6 PER DAY) WITH FOOD
     Route: 048
     Dates: start: 20221201, end: 202212
  2. TAVNEOS [Suspect]
     Active Substance: AVACOPAN
     Dosage: 20 MG, 2X/DAY (^4 PER DAY^)
     Route: 048
     Dates: start: 202212, end: 202212
  3. TAVNEOS [Suspect]
     Active Substance: AVACOPAN
     Dosage: 30 MG, 2X/DAY (6 PER DAY)
     Route: 048
     Dates: start: 202212
  4. TAVNEOS [Suspect]
     Active Substance: AVACOPAN
     Dosage: 30 MG, 2X/DAY WITH FOOD
     Route: 048
  5. TAVNEOS [Suspect]
     Active Substance: AVACOPAN
     Dosage: 20 MG, 2X/DAY WITH FOOD
     Route: 048
  6. TAVNEOS [Suspect]
     Active Substance: AVACOPAN
     Dosage: 30 MG, 2X/DAY WITH FOOD
     Route: 048

REACTIONS (5)
  - Pharyngeal erythema [Unknown]
  - Oropharyngeal pain [Unknown]
  - Pain [Recovering/Resolving]
  - Insomnia [Not Recovered/Not Resolved]
  - Paraesthesia [Recovered/Resolved]

NARRATIVE: CASE EVENT DATE: 20221201
